FAERS Safety Report 23055378 (Version 1)
Quarter: 2023Q4

REPORT INFORMATION
  Report Type: Spontaneous
  Country: US (occurrence: US)
  Receive Date: 20231011
  Receipt Date: 20231011
  Transmission Date: 20240110
  Serious: Yes (Hospitalization, Other)
  Sender: FDA-Public Use
  Company Number: US-LUNDBECK-DKLU3067639

PATIENT
  Age: 10 Year
  Sex: Male
  Weight: 68 kg

DRUGS (10)
  1. CLOBAZAM [Interacting]
     Active Substance: CLOBAZAM
     Indication: Epilepsy
     Dates: start: 20220416, end: 20220418
  2. TOPIRAMATE [Interacting]
     Active Substance: TOPIRAMATE
     Indication: Epilepsy
     Dates: end: 202204
  3. DOXEPIN [Interacting]
     Active Substance: DOXEPIN
     Indication: Insomnia
     Dosage: NIGHTLY
     Dates: start: 20220407, end: 202204
  4. GUANFACINE HYDROCHLORIDE [Concomitant]
     Active Substance: GUANFACINE HYDROCHLORIDE
  5. LEVETIRACETAM [Concomitant]
     Active Substance: LEVETIRACETAM
     Indication: Epilepsy
     Dates: start: 20211106
  6. VALPROIC ACID [Concomitant]
     Active Substance: VALPROIC ACID
     Indication: Epilepsy
  7. TOPIRAMATE [Interacting]
     Active Substance: TOPIRAMATE
     Indication: Epilepsy
     Dates: start: 20220226
  8. DOXEPIN [Interacting]
     Active Substance: DOXEPIN
     Indication: Insomnia
     Dosage: NIGHTLY 2.21 MG/KG
     Dates: start: 20210623
  9. DOXEPIN [Interacting]
     Active Substance: DOXEPIN
     Indication: Insomnia
     Dosage: NIGHTLY 2.94 MG/KG
     Dates: start: 20211015
  10. DOXEPIN [Interacting]
     Active Substance: DOXEPIN
     Indication: Insomnia
     Dosage: NIGHTLY 1.10 MG/KG
     Dates: start: 20210108

REACTIONS (6)
  - Electrocardiogram QRS complex prolonged [Recovered/Resolved]
  - Toxicity to various agents [Recovered/Resolved]
  - Somnolence [Unknown]
  - Fall [Unknown]
  - Condition aggravated [Recovered/Resolved]
  - Drug-genetic interaction [Recovered/Resolved]

NARRATIVE: CASE EVENT DATE: 20220101
